FAERS Safety Report 9516195 (Version 1)
Quarter: 2013Q1

REPORT INFORMATION
  Report Type: Spontaneous
  Country: US (occurrence: None)
  Receive Date: 20130305
  Receipt Date: 20130305
  Transmission Date: 20140127
  Serious: Yes (Other)
  Sender: FDA-Public Use
  Company Number: 163-21880-12113298

PATIENT
  Age: 70 Year
  Sex: Male
  Weight: 68.04 kg

DRUGS (11)
  1. REVLIMID [Suspect]
     Indication: PLASMA CELL MYELOMA
     Dosage: 10 MG, 21 IN 21 D, PO
     Dates: start: 20110303
  2. VITAMIN C (ASCORBIC UNKNOWN - UNKNOWN ACID)  (CAPSULES) [Concomitant]
  3. ADULT LOW DOSE ASPIRIN (ACETYLSALICYLIC ACID) (UNKNOWO) [Concomitant]
  4. BENICAR (OLMESARTAN MEDOXOMIL) (TABLETS) [Concomitant]
  5. CIALIS (TADALAFIL) (TABLETS) [Concomitant]
  6. CLARITHROMYCIN (CLARITHROMYCIN) (UNKNOWN) [Concomitant]
  7. DEXAMETHASONE (DEXAMETHASONE) (UNKNOWN) [Concomitant]
  8. FENOFIBRATE (FENOFIBRATE) (TABLETS) [Concomitant]
  9. IMODIUM A-D (LOPERAMIDE HYDROCHLORIDE) (TABLETS) [Concomitant]
  10. KLOR-CON(POTASSIUM CHLORIDE) (UNKNOWN) [Concomitant]
  11. LANSOPRAZOLE (LANSOPRAZOLE) (UNKNOWN) [Concomitant]

REACTIONS (2)
  - Depression [None]
  - Diarrhoea [None]
